FAERS Safety Report 24741494 (Version 4)
Quarter: 2025Q3

REPORT INFORMATION
  Report Type: Spontaneous
  Country: JP (occurrence: JP)
  Receive Date: 20241217
  Receipt Date: 20250809
  Transmission Date: 20251021
  Serious: Yes (Life-Threatening, Other)
  Sender: ALEXION PHARMACEUTICALS
  Company Number: JP-ASTRAZENECA-240125326_013120_P_1

PATIENT
  Age: 8 Decade
  Sex: Male

DRUGS (10)
  1. DURVALUMAB [Suspect]
     Active Substance: DURVALUMAB
  2. DURVALUMAB [Suspect]
     Active Substance: DURVALUMAB
     Dosage: 1500 MILLIGRAM, Q4W
  3. DURVALUMAB [Suspect]
     Active Substance: DURVALUMAB
     Dosage: 1500 MILLIGRAM, Q4W
  4. TREMELIMUMAB [Suspect]
     Active Substance: TREMELIMUMAB
  5. URSODIOL [Concomitant]
     Active Substance: URSODIOL
  6. PROTEIN [Concomitant]
     Active Substance: PROTEIN
  7. PRAVASTATIN SODIUM [Concomitant]
     Active Substance: PRAVASTATIN SODIUM
  8. TENELIGLIPTIN HYDROBROMIDE HYDRATE [Concomitant]
     Active Substance: TENELIGLIPTIN HYDROBROMIDE HYDRATE
  9. EMPAGLIFLOZIN [Concomitant]
     Active Substance: EMPAGLIFLOZIN
  10. CILNIDIPINE [Concomitant]
     Active Substance: CILNIDIPINE

REACTIONS (4)
  - Renal impairment [Unknown]
  - Hyperkalaemia [Unknown]
  - Rash [Recovered/Resolved]
  - Dehydration [Unknown]
